FAERS Safety Report 23083460 (Version 1)
Quarter: 2023Q4

REPORT INFORMATION
  Report Type: Report from Study
  Country: US (occurrence: US)
  Receive Date: 20231019
  Receipt Date: 20231019
  Transmission Date: 20240110
  Serious: Yes (Other)
  Sender: FDA-Public Use
  Company Number: US-IMMUNOCORE, LTD-2023-IMC-001794

PATIENT
  Age: 63 Year
  Sex: Female

DRUGS (3)
  1. KIMMTRAK [Suspect]
     Active Substance: TEBENTAFUSP-TEBN
     Indication: Uveal melanoma
     Dosage: UNK 1
  2. KIMMTRAK [Suspect]
     Active Substance: TEBENTAFUSP-TEBN
     Dosage: UNK/DOSE 13
  3. KIMMTRAK [Suspect]
     Active Substance: TEBENTAFUSP-TEBN
     Dosage: UNK/DOSE 19

REACTIONS (2)
  - Eye haemorrhage [Not Recovered/Not Resolved]
  - Vision blurred [Not Recovered/Not Resolved]

NARRATIVE: CASE EVENT DATE: 20230813
